FAERS Safety Report 25496093 (Version 1)
Quarter: 2025Q2

REPORT INFORMATION
  Report Type: Spontaneous
  Country: GR (occurrence: GR)
  Receive Date: 20250630
  Receipt Date: 20250630
  Transmission Date: 20250717
  Serious: Yes (Hospitalization, Other)
  Sender: PFIZER
  Company Number: GR-PFIZER INC-PV202500076535

PATIENT
  Age: 82 Year
  Sex: Female

DRUGS (2)
  1. METHYLPREDNISOLONE [Suspect]
     Active Substance: METHYLPREDNISOLONE
     Indication: Autoimmune haemolytic anaemia
  2. METHYLPREDNISOLONE [Suspect]
     Active Substance: METHYLPREDNISOLONE
     Indication: Diabetes mellitus

REACTIONS (1)
  - Meningitis listeria [Recovered/Resolved]
